FAERS Safety Report 25417253 (Version 1)
Quarter: 2025Q2

REPORT INFORMATION
  Report Type: Spontaneous
  Country: GR (occurrence: GR)
  Receive Date: 20250610
  Receipt Date: 20250610
  Transmission Date: 20250716
  Serious: Yes (Other)
  Sender: MYLAN
  Company Number: GR-UCBSA-2025030137

PATIENT
  Sex: Male

DRUGS (6)
  1. LEVETIRACETAM [Suspect]
     Active Substance: LEVETIRACETAM
     Indication: Epilepsy
  2. BRIVARACETAM [Suspect]
     Active Substance: BRIVARACETAM
     Indication: Epilepsy
  3. VALPROIC ACID [Concomitant]
     Active Substance: VALPROIC ACID
     Indication: Epilepsy
  4. OXCARBAZEPINE [Concomitant]
     Active Substance: OXCARBAZEPINE
     Indication: Epilepsy
  5. CHLORAMBUCIL [Concomitant]
     Active Substance: CHLORAMBUCIL
     Indication: Epilepsy
  6. LAMOTRIGINE [Concomitant]
     Active Substance: LAMOTRIGINE
     Indication: Epilepsy

REACTIONS (7)
  - Tonic convulsion [Unknown]
  - Seizure [Unknown]
  - Epilepsy [Not Recovered/Not Resolved]
  - Electroencephalogram abnormal [Unknown]
  - Speech disorder [Unknown]
  - Fatigue [Unknown]
  - Drug ineffective [Unknown]
